FAERS Safety Report 20255025 (Version 1)
Quarter: 2021Q4

REPORT INFORMATION
  Report Type: Spontaneous
  Country: CN (occurrence: CN)
  Receive Date: 20211230
  Receipt Date: 20211230
  Transmission Date: 20220303
  Serious: Yes (Hospitalization, Other)
  Sender: FDA-Public Use
  Company Number: CN-PFIZER INC-202101815204

PATIENT
  Age: 36 Year
  Sex: Female
  Weight: 50 kg

DRUGS (5)
  1. CELEBREX [Suspect]
     Active Substance: CELECOXIB
     Indication: Pain
     Dosage: 1 DF, 2X/DAY
     Route: 048
     Dates: start: 20211208, end: 20211209
  2. CELEBREX [Suspect]
     Active Substance: CELECOXIB
     Indication: Fasciitis
  3. MEDROL [Suspect]
     Active Substance: METHYLPREDNISOLONE
     Indication: Pain
     Dosage: 4 MG, 2X/DAY
     Route: 048
     Dates: start: 20211208, end: 20211209
  4. MEDROL [Suspect]
     Active Substance: METHYLPREDNISOLONE
     Indication: Fasciitis
  5. HERBALS [Suspect]
     Active Substance: HERBALS
     Indication: Fasciitis
     Dosage: 30 ML, 2X/DAY
     Route: 048
     Dates: start: 20211208, end: 20211209

REACTIONS (8)
  - Pyrexia [Recovering/Resolving]
  - Temperature intolerance [Recovering/Resolving]
  - Rash maculo-papular [Recovering/Resolving]
  - Pruritus [Recovering/Resolving]
  - Rash pruritic [Recovering/Resolving]
  - Infection [Recovering/Resolving]
  - Dermatitis allergic [Recovering/Resolving]
  - Off label use [Unknown]

NARRATIVE: CASE EVENT DATE: 20211210
